FAERS Safety Report 24717170 (Version 1)
Quarter: 2024Q4

REPORT INFORMATION
  Report Type: Spontaneous
  Country: NL (occurrence: NL)
  Receive Date: 20241210
  Receipt Date: 20241210
  Transmission Date: 20250114
  Serious: Yes (Hospitalization, Other)
  Sender: HIKMA
  Company Number: NL-HIKMA PHARMACEUTICALS-NL-H14001-24-11403

PATIENT
  Age: 69 Year
  Sex: Male
  Weight: 64 kg

DRUGS (8)
  1. AZACITIDINE [Suspect]
     Active Substance: AZACITIDINE
     Indication: Chronic myeloid leukaemia
     Dosage: 1DD 75MG/M2
     Route: 065
     Dates: start: 20240207, end: 20240208
  2. FENTANYL [Concomitant]
     Active Substance: FENTANYL
     Indication: Product used for unknown indication
     Dosage: PLEISTER
     Route: 062
  3. FENTANYL [Concomitant]
     Active Substance: FENTANYL
     Indication: Product used for unknown indication
     Dosage: 200 MICROGRAM
     Route: 060
  4. MEROPENEM [Concomitant]
     Active Substance: MEROPENEM
     Indication: Product used for unknown indication
     Dosage: 1000 MILLIGRAM
     Route: 065
  5. OXAZEPAM [Concomitant]
     Active Substance: OXAZEPAM
     Indication: Product used for unknown indication
     Dosage: 10 MILLIGRAM
     Route: 048
  6. OXYCODONE [Concomitant]
     Active Substance: OXYCODONE
     Dosage: 10 MILLIGRAM
     Route: 048
  7. PANTOPRAZOLE [Concomitant]
     Active Substance: PANTOPRAZOLE
     Indication: Product used for unknown indication
     Dosage: MAAGSAPRESISTENTE TABLET, 40 MG (MILLIGRAM)
     Route: 048
  8. ACETAMINOPHEN [Concomitant]
     Active Substance: ACETAMINOPHEN
     Indication: Product used for unknown indication
     Dosage: 500 MILLIGRAM
     Route: 048

REACTIONS (4)
  - Epistaxis [Recovered/Resolved]
  - Herpes simplex [Unknown]
  - Pancytopenia [Unknown]
  - Haematochezia [Recovered/Resolved]
